FAERS Safety Report 12117575 (Version 2)
Quarter: 2016Q1

REPORT INFORMATION
  Report Type: Report from Study
  Country: CA (occurrence: CA)
  Receive Date: 20160226
  Receipt Date: 20160309
  Transmission Date: 20160526
  Serious: Yes (Hospitalization, Other)
  Sender: FDA-Public Use
  Company Number: CA-AMGEN-CANSL2016022580

PATIENT
  Age: 70 Year
  Sex: Female

DRUGS (5)
  1. PREDNISONE. [Concomitant]
     Active Substance: PREDNISONE
     Dosage: 30 MG, UNK
     Dates: start: 20151218
  2. PREDNISONE. [Concomitant]
     Active Substance: PREDNISONE
     Dosage: 10 MG, PER DAY
  3. SULFASALAZINE. [Concomitant]
     Active Substance: SULFASALAZINE
  4. HUMIRA [Concomitant]
     Active Substance: ADALIMUMAB
  5. ENBREL [Suspect]
     Active Substance: ETANERCEPT
     Indication: RHEUMATOID ARTHRITIS
     Dosage: 50 MG, UNK
     Route: 065
     Dates: start: 20111128

REACTIONS (3)
  - Pulmonary oedema [Recovering/Resolving]
  - Rheumatoid arthritis [Unknown]
  - Pneumonia [Recovered/Resolved]
